FAERS Safety Report 4687529-6 (Version None)
Quarter: 2005Q2

REPORT INFORMATION
  Report Type: 
  Country: None (occurrence: None)
  Receive Date: 20050610
  Receipt Date: 20050420
  Transmission Date: 20051028
  Serious: Yes (Hospitalization)
  Sender: FDA-Public Use
  Company Number: PHHO2005GB06729

PATIENT
  Age: 34 Year
  Sex: Female

DRUGS (2)
  1. MISOPROSTOL [Suspect]
     Indication: LABOUR INDUCTION
     Dosage: 25 UG, UNK
     Route: 067
     Dates: start: 20050415
  2. SYNTOCINON [Suspect]
     Indication: LABOUR INDUCTION
     Dosage: 10 IU, UNK
     Route: 042
     Dates: start: 20050415

REACTIONS (4)
  - CAESAREAN SECTION [None]
  - DRUG EXPOSURE DURING PREGNANCY [None]
  - FOETAL DISTRESS SYNDROME [None]
  - HAEMORRHAGE [None]
